FAERS Safety Report 20777007 (Version 1)
Quarter: 2022Q2

REPORT INFORMATION
  Report Type: Spontaneous
  Country: US (occurrence: US)
  Receive Date: 20220502
  Receipt Date: 20220502
  Transmission Date: 20220721
  Serious: No
  Sender: FDA-Public Use
  Company Number: US-PFIZER INC-202101384424

PATIENT
  Age: 62 Year
  Sex: Male

DRUGS (2)
  1. ENBREL [Suspect]
     Active Substance: ETANERCEPT
     Indication: Product used for unknown indication
     Dosage: 50 MG, WEEKLY ((Q) EVERY WEEK UNTIL ABOUT 3 WEEKS AGO )
     Route: 058
  2. METHOTREXATE SODIUM [Suspect]
     Active Substance: METHOTREXATE SODIUM
     Indication: Product used for unknown indication
     Dosage: 22.5 MG, WEEKLY
     Route: 058

REACTIONS (4)
  - Bursitis [Unknown]
  - Bloody discharge [Unknown]
  - Tachyphylaxis [Unknown]
  - Injection site pain [Unknown]
